FAERS Safety Report 5376613-X (Version None)
Quarter: 2007Q2

REPORT INFORMATION
  Report Type: 
  Country: None (occurrence: None)
  Receive Date: 20070628
  Receipt Date: 20070619
  Transmission Date: 20071010
  Serious: Yes (Death, Hospitalization)
  Sender: FDA-Public Use
  Company Number: 2007-02922

PATIENT
  Age: 56 Year
  Sex: Male

DRUGS (1)
  1. COLCHICINE  (WATSON LABORATORIES)(COLCHICINE) TABLET, 0.6MG [Suspect]
     Dosage: 24 MG, SINGLE, ORAL
     Route: 048
     Dates: start: 20070101, end: 20070101

REACTIONS (8)
  - ACCIDENTAL OVERDOSE [None]
  - ACIDOSIS [None]
  - CARDIAC ARREST [None]
  - DIARRHOEA [None]
  - DYSPNOEA [None]
  - HYPOPERFUSION [None]
  - HYPOXIA [None]
  - MULTI-ORGAN FAILURE [None]
